FAERS Safety Report 24958255 (Version 2)
Quarter: 2025Q1

REPORT INFORMATION
  Report Type: Report from Study
  Country: US (occurrence: US)
  Receive Date: 20250212
  Receipt Date: 20250213
  Transmission Date: 20250409
  Serious: Yes (Death)
  Sender: ROCHE
  Company Number: US-ROCHE-10000206341

PATIENT
  Age: 59 Year
  Sex: Female

DRUGS (3)
  1. AVASTIN [Suspect]
     Active Substance: BEVACIZUMAB
     Indication: Hepatocellular carcinoma
     Dosage: INFUSE 1700MG INTRAVENOUSLY ONCE EVERY 3 WEEK(S)
     Route: 042
  2. AVASTIN [Suspect]
     Active Substance: BEVACIZUMAB
     Dosage: INFUSE 1700MG INTRAVENOUSLY ONCE EVERY 3 WEEK(S)
     Route: 042
  3. TECENTRIQ [Suspect]
     Active Substance: ATEZOLIZUMAB
     Indication: Hepatocellular carcinoma
     Route: 065

REACTIONS (1)
  - Death [Fatal]
